FAERS Safety Report 7484223-3 (Version None)
Quarter: 2011Q2

REPORT INFORMATION
  Report Type: 
  Country: None (occurrence: None)
  Receive Date: 20110517
  Receipt Date: 20110506
  Transmission Date: 20111010
  Serious: Yes (Other)
  Sender: FDA-Public Use
  Company Number: PHHY2011CA38776

PATIENT
  Sex: Male

DRUGS (4)
  1. NILOTINIB [Concomitant]
  2. WARFARIN SODIUM [Concomitant]
  3. GLEEVEC [Suspect]
     Dosage: 400 MG, UNK
     Route: 048
  4. GLEEVEC [Suspect]
     Dosage: 200 MG, UNK
     Route: 048

REACTIONS (3)
  - ELECTROCARDIOGRAM QT PROLONGED [None]
  - RENAL IMPAIRMENT [None]
  - BLOOD CREATININE INCREASED [None]
